FAERS Safety Report 23152725 (Version 2)
Quarter: 2023Q4

REPORT INFORMATION
  Report Type: Other
  Country: CA (occurrence: None)
  Receive Date: 20231107
  Receipt Date: 20231110
  Transmission Date: 20240109
  Serious: No
  Sender: FDA-Public Use
  Company Number: CA-ROCHE-3445031

PATIENT
  Sex: Female

DRUGS (1)
  1. OCREVUS [Suspect]
     Active Substance: OCRELIZUMAB
     Indication: Primary progressive multiple sclerosis
     Dosage: 300 MG AT DAY 0 AND 14, THEN 600 MG EVERY 6 MONTHS
     Route: 042
     Dates: start: 20231012

REACTIONS (10)
  - Mobility decreased [Not Recovered/Not Resolved]
  - Amblyopia [Not Recovered/Not Resolved]
  - Headache [Recovering/Resolving]
  - Visual impairment [Unknown]
  - Influenza like illness [Recovering/Resolving]
  - Abdominal discomfort [Not Recovered/Not Resolved]
  - Neck pain [Recovering/Resolving]
  - Arthralgia [Recovering/Resolving]
  - Hypersensitivity [Unknown]
  - Vomiting [Recovered/Resolved]
